FAERS Safety Report 13400206 (Version 1)
Quarter: 2017Q2

REPORT INFORMATION
  Report Type: Spontaneous
  Country: US (occurrence: US)
  Receive Date: 20170404
  Receipt Date: 20170404
  Transmission Date: 20170830
  Serious: No
  Sender: FDA-Public Use
  Company Number: None

PATIENT
  Age: 64 Year
  Sex: Female
  Weight: 66.6 kg

DRUGS (1)
  1. ENBREL [Suspect]
     Active Substance: ETANERCEPT
     Indication: ANKYLOSING SPONDYLITIS
     Dosage: ?          OTHER FREQUENCY:WEEKLY;?
     Route: 058
     Dates: start: 20170314

REACTIONS (6)
  - Malaise [None]
  - Vomiting [None]
  - Abdominal pain upper [None]
  - Nausea [None]
  - Diarrhoea [None]
  - Antibiotic therapy [None]

NARRATIVE: CASE EVENT DATE: 20170403
